FAERS Safety Report 6547386-X (Version None)
Quarter: 2010Q1

REPORT INFORMATION
  Report Type: 
  Country: None (occurrence: None)
  Receive Date: 20100122
  Receipt Date: 20100111
  Transmission Date: 20100710
  Serious: Yes (Other)
  Sender: FDA-Public Use
  Company Number: PHHY2010US01610

PATIENT
  Sex: Female

DRUGS (13)
  1. TRILEPTAL [Suspect]
     Dosage: 300 MG IN THE MORNING AND 300 MG IN THE EVENING
  2. TRILEPTAL [Suspect]
     Dosage: 600 MG IN THE MORNING AND 600 MG IN THE EVENING
     Dates: start: 20040101
  3. TRILEPTAL [Suspect]
     Dosage: ONE PILL A DAY
  4. TRILEPTAL [Suspect]
     Dosage: 300 MG IN THE MORNING AND 600 MG IN THE EVENING
  5. DILANTIN [Concomitant]
  6. LAMICTAL [Concomitant]
  7. TRENTAL [Concomitant]
  8. NAPROXEN [Concomitant]
  9. MULTI-VITAMINS [Concomitant]
  10. CITRACAL [Concomitant]
  11. VITAMIN D [Concomitant]
  12. VITAMIN C [Concomitant]
  13. BETACAROTENE [Concomitant]

REACTIONS (7)
  - BALANCE DISORDER [None]
  - DIZZINESS [None]
  - FALL [None]
  - PRURITUS [None]
  - SOMNOLENCE [None]
  - VERTIGO [None]
  - VISUAL IMPAIRMENT [None]
